FAERS Safety Report 17675615 (Version 3)
Quarter: 2020Q2

REPORT INFORMATION
  Report Type: Spontaneous
  Country: US (occurrence: US)
  Receive Date: 20200416
  Receipt Date: 20200521
  Transmission Date: 20200714
  Serious: Yes (Other)
  Sender: FDA-Public Use
  Company Number: US-PFIZER INC-2020133365

PATIENT
  Age: 82 Year
  Sex: Female

DRUGS (1)
  1. ADVIL PM [Suspect]
     Active Substance: DIPHENHYDRAMINE CITRATE\IBUPROFEN
     Indication: POOR QUALITY SLEEP
     Dosage: UNK, 1X/DAY (1-2 NIGHT)

REACTIONS (2)
  - Memory impairment [Unknown]
  - Dementia [Unknown]
